FAERS Safety Report 20951309 (Version 1)
Quarter: 2022Q2

REPORT INFORMATION
  Report Type: Spontaneous
  Country: JP (occurrence: JP)
  Receive Date: 20220613
  Receipt Date: 20220613
  Transmission Date: 20220721
  Serious: Yes (Other)
  Sender: FDA-Public Use
  Company Number: JP-TAKEDA-2022TJP055916

PATIENT

DRUGS (1)
  1. ZEJULA [Suspect]
     Active Substance: NIRAPARIB
     Indication: Product used for unknown indication
     Dosage: UNK, QD
     Route: 048

REACTIONS (24)
  - Fallopian tube cancer [Unknown]
  - Disease progression [Unknown]
  - Ovarian cancer [Unknown]
  - Disease progression [Unknown]
  - Ovarian cancer [Unknown]
  - Disease progression [Unknown]
  - Ovarian cancer [Unknown]
  - Disease progression [Unknown]
  - Ovarian cancer [Unknown]
  - Disease progression [Unknown]
  - Ovarian cancer [Unknown]
  - Disease progression [Unknown]
  - Intestinal obstruction [Unknown]
  - Neutrophil count decreased [Unknown]
  - Anaemia [Unknown]
  - Liver disorder [Unknown]
  - Renal disorder [Unknown]
  - Platelet count decreased [Unknown]
  - Hypertension [Unknown]
  - Nausea [Unknown]
  - Platelet count decreased [Unknown]
  - Neutrophil count decreased [Unknown]
  - Malaise [Unknown]
  - Platelet count decreased [Unknown]
